FAERS Safety Report 10665312 (Version 2)
Quarter: 2014Q4

REPORT INFORMATION
  Report Type: Report from Study
  Country: MY (occurrence: MY)
  Receive Date: 20141219
  Receipt Date: 20141219
  Transmission Date: 20150529
  Serious: Yes (Hospitalization)
  Sender: FDA-Public Use
  Company Number: MY-EISAI MEDICAL RESEARCH-EC-2014-002161

PATIENT
  Age: 23 Year
  Sex: Male
  Weight: 71 kg

DRUGS (5)
  1. PERAMPANEL [Suspect]
     Active Substance: PERAMPANEL
     Indication: PARTIAL SEIZURES
     Route: 048
     Dates: start: 2014, end: 2014
  2. SODIUM VALPROATE [Concomitant]
     Active Substance: VALPROATE SODIUM
  3. PERAMPANEL [Suspect]
     Active Substance: PERAMPANEL
     Route: 048
     Dates: start: 2014, end: 2014
  4. PHENYTOIN. [Concomitant]
     Active Substance: PHENYTOIN
  5. PERAMPANEL [Suspect]
     Active Substance: PERAMPANEL
     Route: 048
     Dates: start: 20140828, end: 20141203

REACTIONS (1)
  - Postictal psychosis [Recovered/Resolved]

NARRATIVE: CASE EVENT DATE: 20141202
